FAERS Safety Report 20563304 (Version 2)
Quarter: 2022Q2

REPORT INFORMATION
  Report Type: Report from Study
  Country: US (occurrence: US)
  Receive Date: 20220308
  Receipt Date: 20220405
  Transmission Date: 20220720
  Serious: Yes (Hospitalization)
  Sender: FDA-Public Use
  Company Number: US-ABBVIE-22K-163-4301631-00

PATIENT
  Sex: Male

DRUGS (1)
  1. HUMIRA [Suspect]
     Active Substance: ADALIMUMAB
     Indication: Crohn^s disease
     Route: 058

REACTIONS (2)
  - Coronary artery occlusion [Recovering/Resolving]
  - Crohn^s disease [Not Recovered/Not Resolved]
